FAERS Safety Report 25348460 (Version 1)
Quarter: 2025Q2

REPORT INFORMATION
  Report Type: Spontaneous
  Country: US (occurrence: None)
  Receive Date: 20250522
  Receipt Date: 20250522
  Transmission Date: 20250717
  Serious: Yes (Other)
  Sender: FDA-CTU
  Company Number: None

PATIENT
  Age: 35 Year
  Sex: Female

DRUGS (1)
  1. ZYRTEC [Suspect]
     Active Substance: CETIRIZINE HYDROCHLORIDE
     Indication: Multiple allergies

REACTIONS (7)
  - Drug hypersensitivity [None]
  - Therapy cessation [None]
  - Urticaria [None]
  - Pruritus [None]
  - Exposure during pregnancy [None]
  - Vomiting [None]
  - Exposure via breast milk [None]

NARRATIVE: CASE EVENT DATE: 20240325
